FAERS Safety Report 5535560-0 (Version None)
Quarter: 2007Q4

REPORT INFORMATION
  Report Type: 
  Country: None (occurrence: None)
  Receive Date: 20071206
  Receipt Date: 20071129
  Transmission Date: 20080405
  Serious: Yes (Hospitalization)
  Sender: FDA-Public Use
  Company Number: JP-ASTRAZENECA-2007AP06226

PATIENT
  Age: 1008 Day
  Sex: Male
  Weight: 13 kg

DRUGS (7)
  1. ANAPEINE INJECTION [Suspect]
     Indication: INFILTRATION ANAESTHESIA
     Dosage: 3 ML GIVEN IN THE RIGHT SIDE OF THE FACE, 1.8 ML GIVEN IN LEFT SIDE OF THE FACE
     Dates: start: 20060925, end: 20060925
  2. SEVOFLURANE [Concomitant]
     Indication: INDUCTION OF ANAESTHESIA
     Dosage: INDUCTION
     Route: 055
     Dates: start: 20060925, end: 20060925
  3. SEVOFLURANE [Concomitant]
     Indication: MAINTENANCE OF ANAESTHESIA
     Dosage: INDUCTION
     Route: 055
     Dates: start: 20060925, end: 20060925
  4. SEVOFLURANE [Concomitant]
     Dosage: MAINTENANCE
     Route: 055
  5. SEVOFLURANE [Concomitant]
     Dosage: MAINTENANCE
     Route: 055
  6. DORMICUM [Concomitant]
     Indication: MAINTENANCE OF ANAESTHESIA
     Dates: start: 20060925, end: 20060925
  7. FLUMAZENIL [Concomitant]
     Indication: SOMNOLENCE
     Dates: start: 20070101

REACTIONS (2)
  - FACIAL PALSY [None]
  - PNEUMONIA ASPIRATION [None]
